FAERS Safety Report 10630085 (Version 2)
Quarter: 2014Q4

REPORT INFORMATION
  Report Type: Spontaneous
  Country: US (occurrence: US)
  Receive Date: 20141205
  Receipt Date: 20141205
  Transmission Date: 20150529
  Serious: Yes (Hospitalization)
  Sender: FDA-Public Use
  Company Number: US-BRISTOL-MYERS SQUIBB COMPANY-21287529

PATIENT
  Age: 53 Year
  Sex: Male

DRUGS (9)
  1. LASIX [Concomitant]
     Active Substance: FUROSEMIDE
  2. SPRYCEL [Suspect]
     Active Substance: DASATINIB
     Indication: CHRONIC MYELOID LEUKAEMIA
     Dosage: TABLET
     Route: 048
     Dates: start: 20120917, end: 201406
  3. METOPROLOL [Concomitant]
     Active Substance: METOPROLOL
  4. NORVASC [Concomitant]
     Active Substance: AMLODIPINE BESYLATE
  5. CETIRIZINE [Concomitant]
     Active Substance: CETIRIZINE HYDROCHLORIDE
  6. AMIODARONE [Concomitant]
     Active Substance: AMIODARONE
  7. METFORMIN [Concomitant]
     Active Substance: METFORMIN HYDROCHLORIDE
  8. ALPRAZOLAM. [Concomitant]
     Active Substance: ALPRAZOLAM
  9. XARELTO [Concomitant]
     Active Substance: RIVAROXABAN

REACTIONS (3)
  - Pleural effusion [Recovering/Resolving]
  - Atrial fibrillation [Recovering/Resolving]
  - Pericardial effusion [Recovering/Resolving]
